FAERS Safety Report 7064620-0 (Version None)
Quarter: 2010Q4

REPORT INFORMATION
  Report Type: 
  Country: None (occurrence: None)
  Receive Date: 20101019
  Receipt Date: 20101007
  Transmission Date: 20110411
  Serious: Yes (Other)
  Sender: FDA-Public Use
  Company Number: 2010-3489

PATIENT
  Sex: Female

DRUGS (2)
  1. DYSPORT [Suspect]
     Indication: ACQUIRED CLAW TOE
     Dosage: (SINGLE CYCLE),INTRAMUSCULAR
     Route: 030
  2. DYSPORT [Suspect]
     Indication: OFF LABEL USE
     Dosage: (SINGLE CYCLE),INTRAMUSCULAR
     Route: 030

REACTIONS (1)
  - MUSCULAR WEAKNESS [None]
